FAERS Safety Report 15489479 (Version 2)
Quarter: 2018Q4

REPORT INFORMATION
  Report Type: Spontaneous
  Country: US (occurrence: US)
  Receive Date: 20181011
  Receipt Date: 20181113
  Transmission Date: 20190205
  Serious: Yes (Other)
  Sender: FDA-Public Use
  Company Number: US-NOVOPROD-625939

PATIENT
  Age: 51 Year
  Sex: Female

DRUGS (1)
  1. VICTOZA [Suspect]
     Active Substance: LIRAGLUTIDE
     Indication: PRODUCT USED FOR UNKNOWN INDICATION
     Dosage: 0.6 MG, QD
     Route: 058
     Dates: start: 20180809

REACTIONS (7)
  - Fall [Recovering/Resolving]
  - Vomiting [Unknown]
  - Balance disorder [Not Recovered/Not Resolved]
  - Head injury [Unknown]
  - Blindness [Not Recovered/Not Resolved]
  - Dizziness [Not Recovered/Not Resolved]
  - Joint injury [Unknown]

NARRATIVE: CASE EVENT DATE: 20180809
